FAERS Safety Report 4426505-5 (Version None)
Quarter: 2004Q3

REPORT INFORMATION
  Report Type: 
  Country: None (occurrence: None)
  Receive Date: 20040816
  Receipt Date: 20040708
  Transmission Date: 20050211
  Serious: Yes (Hospitalization, Disabling, Other)
  Sender: FDA-Public Use
  Company Number: 200416815GDDC

PATIENT
  Age: 48 Year
  Sex: Female

DRUGS (5)
  1. LEFLUNOMIDE [Suspect]
     Indication: ARTHRITIS
     Route: 048
     Dates: start: 20010101, end: 20040601
  2. PREDNISOLONE [Concomitant]
     Route: 048
  3. ORUVAIL [Concomitant]
     Route: 048
  4. NORGESTON [Concomitant]
     Dosage: DOSE: UNK
  5. PROTIUM [Concomitant]
     Route: 048

REACTIONS (2)
  - COLITIS ISCHAEMIC [None]
  - DIARRHOEA [None]
